FAERS Safety Report 6427617-7 (Version None)
Quarter: 2009Q4

REPORT INFORMATION
  Report Type: 
  Country: None (occurrence: None)
  Receive Date: 20091104
  Receipt Date: 20091027
  Transmission Date: 20100525
  Serious: Yes (Disabling)
  Sender: FDA-Public Use
  Company Number: JP-ABBOTT-09P-087-0601086-00

PATIENT
  Sex: Female

DRUGS (13)
  1. HUMIRA [Suspect]
     Indication: RHEUMATOID ARTHRITIS
     Route: 058
     Dates: start: 20081104, end: 20090622
  2. FAMOTIDINE [Concomitant]
     Indication: PROPHYLAXIS AGAINST GASTROINTESTINAL ULCER
     Route: 048
  3. REBAMIPIDE [Concomitant]
     Indication: PROPHYLAXIS AGAINST GASTROINTESTINAL ULCER
     Route: 048
  4. BIFIDOBACTERIUM [Concomitant]
     Indication: CONSTIPATION
     Route: 048
  5. BROTIZOLAM [Concomitant]
     Indication: INSOMNIA
     Route: 048
  6. MAGNESIUM OXIDE [Concomitant]
     Indication: CONSTIPATION
     Route: 048
  7. AMLODIPINE BESYLATE [Concomitant]
     Indication: HYPERTENSION
     Route: 048
  8. PREDNISOLONE [Concomitant]
     Indication: DRUG USE FOR UNKNOWN INDICATION
     Dosage: 30MG DAILY
     Dates: start: 20090724, end: 20090806
  9. PREDNISOLONE [Concomitant]
     Dates: start: 20090807, end: 20090817
  10. PREDNISOLONE [Concomitant]
     Dates: start: 20090818, end: 20090831
  11. PREDNISOLONE [Concomitant]
     Dates: start: 20090901, end: 20090928
  12. PREDNISOLONE [Concomitant]
     Dates: start: 20090929, end: 20091012
  13. PREDNISOLONE [Concomitant]
     Dosage: 13 MG DAILY
     Dates: start: 20091013

REACTIONS (2)
  - PURPURA [None]
  - SKIN ULCER [None]
